FAERS Safety Report 11805191 (Version 1)
Quarter: 2015Q4

REPORT INFORMATION
  Report Type: Spontaneous
  Country: GR (occurrence: GR)
  Receive Date: 20151206
  Receipt Date: 20151206
  Transmission Date: 20160305
  Serious: Yes (Other)
  Sender: FDA-Public Use
  Company Number: GR-MYLANLABS-2015M1043190

PATIENT

DRUGS (3)
  1. IPRATROPIUM BROMIDE,SALBUTAMOL [Suspect]
     Active Substance: ALBUTEROL SULFATE\IPRATROPIUM BROMIDE
     Indication: BRONCHOSPASM
     Route: 050
  2. RAMIPRIL. [Concomitant]
     Active Substance: RAMIPRIL
     Indication: HYPERTENSION
     Dosage: 5MG DAILY
     Route: 065
  3. CARVEDILOL. [Concomitant]
     Active Substance: CARVEDILOL
     Indication: HYPERTENSION
     Dosage: 12.5MG DAILY
     Route: 065

REACTIONS (3)
  - Presyncope [None]
  - Left ventricle outflow tract obstruction [Recovered/Resolved]
  - Dizziness [None]
